FAERS Safety Report 7773232-2 (Version None)
Quarter: 2011Q3

REPORT INFORMATION
  Report Type: 
  Country: None (occurrence: None)
  Receive Date: 20110922
  Receipt Date: 20110912
  Transmission Date: 20111222
  Serious: Yes (Death, Hospitalization)
  Sender: FDA-Public Use
  Company Number: US-BAXTER-2011BH029081

PATIENT
  Age: 60 Year
  Sex: Female

DRUGS (1)
  1. GAMMAGARD LIQUID [Suspect]
     Indication: IMMUNOGLOBULINS DECREASED
     Route: 042
     Dates: start: 20110217, end: 20110217

REACTIONS (2)
  - IMMUNODEFICIENCY [None]
  - RESPIRATORY FAILURE [None]
